FAERS Safety Report 21518702 (Version 1)
Quarter: 2022Q4

REPORT INFORMATION
  Report Type: Spontaneous
  Country: US (occurrence: None)
  Receive Date: 20221027
  Receipt Date: 20221027
  Transmission Date: 20230112
  Serious: Yes (Other)
  Sender: FDA-Public Use
  Company Number: None

PATIENT
  Age: 77 Year
  Sex: Female
  Weight: 50.1 kg

DRUGS (7)
  1. OXALIPLATIN [Suspect]
     Active Substance: OXALIPLATIN
     Indication: Oesophageal carcinoma
     Dosage: FREQUENCY : EVERY OTHER WEEK;?
     Route: 041
     Dates: start: 20220714
  2. OXALIPLATIN [Suspect]
     Active Substance: OXALIPLATIN
     Indication: Oesophageal carcinoma
     Dosage: OTHER FREQUENCY : Q2WEEK;?
     Route: 041
     Dates: start: 20220714
  3. DEXAMETHASONE [Concomitant]
     Active Substance: DEXAMETHASONE
     Dates: start: 20220714
  4. ONDANSETRON [Concomitant]
     Active Substance: ONDANSETRON
     Dates: start: 20220714
  5. NIVOLUMAB [Concomitant]
     Active Substance: NIVOLUMAB
     Dates: start: 20220714
  6. LEUCOVORIN [Concomitant]
     Active Substance: LEUCOVORIN
     Dates: start: 20220714
  7. FLUOROURACIL [Concomitant]
     Active Substance: FLUOROURACIL
     Dates: start: 20220714

REACTIONS (2)
  - Infusion related reaction [None]
  - Feeling hot [None]

NARRATIVE: CASE EVENT DATE: 20220726
